FAERS Safety Report 5209707-X (Version None)
Quarter: 2006Q4

REPORT INFORMATION
  Report Type: 
  Country: None (occurrence: None)
  Receive Date: 20061128
  Receipt Date: 20051212
  Transmission Date: 20070319
  Serious: Yes (Other)
  Sender: FDA-Public Use
  Company Number: 2005141353

PATIENT
  Age: 74 Year
  Sex: Female
  Weight: 56.6996 kg

DRUGS (10)
  1. TIKOSYN [Suspect]
     Indication: ATRIAL FIBRILLATION
     Dosage: 1000 MCG (500 MCG, 2 IN 1D)
     Dates: start: 20050928
  2. COUMADIN [Concomitant]
  3. CLONAZEPAM [Concomitant]
  4. METOPROLOL TARTRATE [Concomitant]
  5. CADUET [Concomitant]
  6. TORSEMIDE [Concomitant]
  7. POTASSIUM (POTASSIUM) [Concomitant]
  8. SPIRIVA INHALER (TIOTROPIUM BROMIDE) [Concomitant]
  9. OXYGEN (OXYGEN) [Concomitant]
  10. DIOVAN [Concomitant]

REACTIONS (5)
  - CONSTIPATION [None]
  - DIZZINESS [None]
  - DRUG INEFFECTIVE [None]
  - HYPERHIDROSIS [None]
  - LOSS OF CONSCIOUSNESS [None]
